FAERS Safety Report 6326002-6 (Version None)
Quarter: 2009Q3

REPORT INFORMATION
  Report Type: 
  Country: None (occurrence: None)
  Receive Date: 20090824
  Receipt Date: 20090819
  Transmission Date: 20100115
  Serious: Yes (Hospitalization, Other)
  Sender: FDA-Public Use
  Company Number: IR-ROXANE LABORATORIES, INC.-2009-RO-00848RO

PATIENT
  Age: 24 Year
  Sex: Male

DRUGS (8)
  1. RISPERIDONE [Suspect]
     Indication: SCHIZOPHRENIA
  2. RISPERIDONE [Suspect]
     Indication: INSOMNIA
     Dosage: 6 MG
  3. RISPERIDONE [Suspect]
     Dosage: 4 MG
  4. LITHIUM CARBONATE [Suspect]
     Indication: SCHIZOPHRENIA
  5. DIAZEPAM [Suspect]
     Indication: PRIAPISM
  6. HALOPERIDOL [Suspect]
     Indication: SCHIZOPHRENIA
  7. TRIHEXYPHENIDYL HCL [Suspect]
     Indication: SCHIZOPHRENIA
  8. OLANZAPINE [Suspect]
     Indication: SCHIZOPHRENIA

REACTIONS (4)
  - DRUG INEFFECTIVE [None]
  - INSOMNIA [None]
  - PARKINSONISM [None]
  - PRIAPISM [None]
